FAERS Safety Report 20409482 (Version 1)
Quarter: 2022Q1

REPORT INFORMATION
  Report Type: Spontaneous
  Country: US (occurrence: US)
  Receive Date: 20220201
  Receipt Date: 20220201
  Transmission Date: 20220423
  Serious: Yes (Other)
  Sender: FDA-Public Use
  Company Number: US-GLAXOSMITHKLINE-US2022GSK017082

PATIENT
  Sex: Female

DRUGS (4)
  1. RANITIDINE [Suspect]
     Active Substance: RANITIDINE
     Dosage: 75 MG, BID
     Route: 065
     Dates: start: 201201, end: 201206
  2. ZANTAC [Suspect]
     Active Substance: RANITIDINE HYDROCHLORIDE
     Dosage: 75 MG, WE
     Route: 065
     Dates: start: 201206, end: 201301
  3. RANITIDINE [Suspect]
     Active Substance: RANITIDINE
     Dosage: 75 MG, WE
     Route: 065
     Dates: start: 201206, end: 201301
  4. RANITIDINE [Suspect]
     Active Substance: RANITIDINE
     Dosage: 75 MG, BID
     Route: 065
     Dates: start: 201201, end: 201206

REACTIONS (1)
  - Thyroid cancer [Unknown]
